FAERS Safety Report 5166903-8 (Version None)
Quarter: 2006Q4

REPORT INFORMATION
  Report Type: 
  Country: None (occurrence: None)
  Receive Date: 20061204
  Receipt Date: 20061204
  Transmission Date: 20070319
  Serious: Yes (Other)
  Sender: FDA-Public Use
  Company Number: None

PATIENT
  Sex: Female
  Weight: 64.4108 kg

DRUGS (1)
  1. ZOMETA [Suspect]
     Indication: OSTEITIS DEFORMANS
     Dosage: 4 MG 1 X IV DRIP
     Route: 041
     Dates: start: 20050208, end: 20050208

REACTIONS (1)
  - ALOPECIA [None]
